FAERS Safety Report 21098966 (Version 3)
Quarter: 2022Q3

REPORT INFORMATION
  Report Type: Spontaneous
  Country: CA (occurrence: CA)
  Receive Date: 20220719
  Receipt Date: 20220920
  Transmission Date: 20221027
  Serious: Yes (Other)
  Sender: FDA-Public Use
  Company Number: CA-PFIZER INC-202200965604

PATIENT

DRUGS (7)
  1. FRAGMIN [Interacting]
     Active Substance: DALTEPARIN SODIUM
     Indication: In vitro fertilisation
     Dosage: UNK
     Route: 065
  2. FRAGMIN [Interacting]
     Active Substance: DALTEPARIN SODIUM
     Dosage: UNK
     Route: 065
  3. HUMAN IMMUNOGLOBULIN G [Interacting]
     Active Substance: HUMAN IMMUNOGLOBULIN G
     Indication: Infertility
     Dosage: UNK
  4. HUMAN IMMUNOGLOBULIN G [Interacting]
     Active Substance: HUMAN IMMUNOGLOBULIN G
     Indication: In vitro fertilisation
     Dosage: UNK
  5. CUVITRU [Interacting]
     Active Substance: HUMAN IMMUNOGLOBULIN G
     Indication: Infertility
     Dosage: 12 G, WEEKLY
     Route: 058
  6. CUVITRU [Interacting]
     Active Substance: HUMAN IMMUNOGLOBULIN G
     Indication: In vitro fertilisation
  7. ASPIRIN [Concomitant]
     Active Substance: ASPIRIN
     Dosage: UNK
     Route: 065

REACTIONS (14)
  - Back pain [Unknown]
  - Disturbance in attention [Unknown]
  - Dizziness [Unknown]
  - Drug interaction [Unknown]
  - Fatigue [Unknown]
  - Headache [Unknown]
  - Immune-mediated adverse reaction [Unknown]
  - Irritability [Unknown]
  - Mental disorder [Unknown]
  - Muscle twitching [Unknown]
  - Neuralgia [Unknown]
  - Vasculitis [Unknown]
  - Vascular pain [Unknown]
  - Off label use [Unknown]
